FAERS Safety Report 8166160-4 (Version None)
Quarter: 2012Q1

REPORT INFORMATION
  Report Type: 
  Country: None (occurrence: None)
  Receive Date: 20120227
  Receipt Date: 20110418
  Transmission Date: 20120608
  Serious: No
  Sender: FDA-Public Use
  Company Number: US-MYLANLABS-2011S1007994

PATIENT
  Age: 15 Year
  Sex: Male

DRUGS (6)
  1. CLARAVIS [Suspect]
     Route: 048
  2. CLARAVIS [Suspect]
     Route: 048
  3. AMNESTEEM [Suspect]
     Route: 048
     Dates: end: 20110405
  4. AMNESTEEM [Suspect]
     Route: 048
  5. CLARAVIS [Suspect]
     Indication: ACNE
     Route: 048
     Dates: start: 20110107
  6. AMNESTEEM [Suspect]
     Indication: ACNE
     Route: 048

REACTIONS (2)
  - ARTHRALGIA [None]
  - DRY SKIN [None]
